FAERS Safety Report 7541829-0 (Version None)
Quarter: 2011Q2

REPORT INFORMATION
  Report Type: 
  Country: None (occurrence: None)
  Receive Date: 20110613
  Receipt Date: 20110530
  Transmission Date: 20111010
  Serious: Yes (Hospitalization)
  Sender: FDA-Public Use
  Company Number: NO-JNJFOC-20110600283

PATIENT
  Sex: Male

DRUGS (8)
  1. REMICADE [Suspect]
     Route: 042
     Dates: start: 20050101
  2. PREDNISOLONE [Concomitant]
  3. METHOTREXATE [Concomitant]
     Dates: start: 20100125
  4. REMICADE [Suspect]
     Indication: ANKYLOSING SPONDYLITIS
     Route: 042
     Dates: start: 20110202
  5. REMICADE [Suspect]
     Route: 042
     Dates: start: 20100101, end: 20100812
  6. PARACET [Concomitant]
  7. CALCIGRAN FORTE [Concomitant]
     Dates: start: 20100425
  8. ENBREL [Concomitant]
     Dates: start: 20101025, end: 20110126

REACTIONS (5)
  - THROMBOCYTOPENIA [None]
  - PROTEINURIA [None]
  - DRUG INEFFECTIVE [None]
  - HAEMATURIA [None]
  - HYPERTENSION [None]
